FAERS Safety Report 6693845-9 (Version None)
Quarter: 2010Q2

REPORT INFORMATION
  Report Type: 
  Country: None (occurrence: None)
  Receive Date: 20100423
  Receipt Date: 20100412
  Transmission Date: 20101027
  Serious: Yes (Other)
  Sender: FDA-Public Use
  Company Number: PHHY2010GR22555

PATIENT
  Sex: Female

DRUGS (1)
  1. ZOMARIST [Suspect]
     Indication: TYPE 2 DIABETES MELLITUS
     Dosage: 850/50 MG FOR 1 DAY
     Route: 048

REACTIONS (3)
  - ANURIA [None]
  - MYALGIA [None]
  - SOMNOLENCE [None]
